FAERS Safety Report 14082322 (Version 1)
Quarter: 2017Q4

REPORT INFORMATION
  Report Type: Spontaneous
  Country: JP (occurrence: JP)
  Receive Date: 20171013
  Receipt Date: 20171013
  Transmission Date: 20180321
  Serious: Yes (Other)
  Sender: FDA-Public Use
  Company Number: JP-DEPOMED, INC.-JP-2017DEP001962

PATIENT
  Age: 75 Year
  Sex: Female

DRUGS (8)
  1. FENTANYL. [Suspect]
     Active Substance: FENTANYL
     Indication: ANALGESIC THERAPY
     Dosage: 0.1 MG, UNK
     Route: 008
  2. PROPOFOL. [Suspect]
     Active Substance: PROPOFOL
     Indication: GENERAL ANAESTHESIA
     Dosage: 50 MG, UNK
  3. REMIFENTANIL [Suspect]
     Active Substance: REMIFENTANIL
     Indication: GENERAL ANAESTHESIA
     Dosage: 0.25 ?G/KG/MIN
  4. FENTANYL. [Suspect]
     Active Substance: FENTANYL
     Dosage: 2.5 ?G/ML, UNK
     Route: 008
  5. LEVOBUPIVACAINE [Suspect]
     Active Substance: LEVOBUPIVACAINE
     Indication: ANALGESIC THERAPY
     Dosage: 4 ML, UNK (0.25%)
     Route: 008
  6. ROCURONIUM [Suspect]
     Active Substance: ROCURONIUM BROMIDE
     Indication: GENERAL ANAESTHESIA
     Dosage: 40 MG, UNK
  7. LEVOBUPIVACAINE [Suspect]
     Active Substance: LEVOBUPIVACAINE
     Dosage: 4 ML, HOURLY (0.2%)
     Route: 008
  8. SEVOFLURANE. [Suspect]
     Active Substance: SEVOFLURANE
     Indication: GENERAL ANAESTHESIA
     Dosage: UNK

REACTIONS (3)
  - Sensory loss [Unknown]
  - Paraplegia [Unknown]
  - Spinal cord infarction [Unknown]
